FAERS Safety Report 8024949-6 (Version None)
Quarter: 2012Q1

REPORT INFORMATION
  Report Type: 
  Country: None (occurrence: None)
  Receive Date: 20120105
  Receipt Date: 20111229
  Transmission Date: 20120608
  Serious: Yes (Hospitalization)
  Sender: FDA-Public Use
  Company Number: PHHO2011GB021812

PATIENT
  Sex: Male
  Weight: 76.5 kg

DRUGS (17)
  1. SYMBICORT [Concomitant]
     Indication: CHRONIC OBSTRUCTIVE PULMONARY DISEASE
     Dosage: 400/12 INH BID
     Dates: start: 20100401
  2. FUROSEMIDE [Concomitant]
     Dosage: 40 MG, BID
     Route: 048
     Dates: start: 20111229
  3. OMEPRAZOLE [Concomitant]
     Dosage: 40 MG, UNK
     Route: 042
     Dates: start: 20111227
  4. BLINDED LCZ696 [Suspect]
     Indication: CARDIAC FAILURE CHRONIC
     Dosage: SCREENING PHASE
  5. RAMIPRIL [Concomitant]
     Dosage: 10 MG, QD
     Route: 048
     Dates: start: 20111227
  6. BISOPROLOL [Concomitant]
     Dosage: 3.75 MG, QD
     Route: 048
     Dates: start: 20111227
  7. WARFARIN SODIUM [Suspect]
     Indication: ATRIAL FIBRILLATION
  8. ENALAPRIL MALEATE [Suspect]
     Indication: CARDIAC FAILURE CHRONIC
     Dosage: SCREENING PHASE
  9. SPIRIVA [Concomitant]
     Indication: CHRONIC OBSTRUCTIVE PULMONARY DISEASE
     Dosage: 18 UG, QD, INH
     Dates: start: 20031201
  10. SYMBICORT [Concomitant]
     Indication: FIBROSIS
  11. FUROSEMIDE [Concomitant]
     Dosage: 40 MG, QD
     Route: 048
  12. WARFARIN SODIUM [Suspect]
     Indication: PULMONARY EMBOLISM
     Dosage: VARIABLE QD
     Route: 048
     Dates: start: 19940301, end: 20111226
  13. BLINDED NO TREATMENT RECEIVED [Suspect]
     Indication: CARDIAC FAILURE CHRONIC
     Dosage: SCREENING PHASE
  14. WARFARIN SODIUM [Suspect]
     Indication: DEEP VEIN THROMBOSIS
  15. BISOPROLOL [Concomitant]
     Indication: CARDIAC FAILURE
     Dosage: 2.5 MG, QD
     Route: 048
     Dates: start: 20090101, end: 20111226
  16. RAMIPRIL [Concomitant]
     Indication: CARDIAC FAILURE
     Dosage: 5 MG, QD
     Route: 048
     Dates: start: 20030901, end: 20111226
  17. DIGOXIN [Concomitant]
     Indication: ATRIAL FLUTTER
     Dosage: 125 UG, QD
     Route: 048
     Dates: start: 20091226

REACTIONS (4)
  - LOWER RESPIRATORY TRACT INFECTION [None]
  - CONCOMITANT DISEASE PROGRESSION [None]
  - ANAEMIA [None]
  - HAEMATURIA [None]
